FAERS Safety Report 6502567-6 (Version None)
Quarter: 2009Q4

REPORT INFORMATION
  Report Type: 
  Country: None (occurrence: None)
  Receive Date: 20091217
  Receipt Date: 20091126
  Transmission Date: 20100525
  Serious: Yes (Other)
  Sender: FDA-Public Use
  Company Number: US-SANOFI-AVENTIS-2009SA006046

PATIENT
  Sex: Male

DRUGS (2)
  1. OPTICLICK [Suspect]
  2. LANTUS [Suspect]
     Route: 058

REACTIONS (1)
  - DEVICE MALFUNCTION [None]
